FAERS Safety Report 8904389 (Version 2)
Quarter: 2012Q4

REPORT INFORMATION
  Report Type: 
  Country: HU (occurrence: HU)
  Receive Date: 20121112
  Receipt Date: 20121204
  Transmission Date: 20130627
  Serious: Yes (Hospitalization, Other)
  Sender: FDA-Public Use
  Company Number: HU-MERCK-1211HUN003423

PATIENT
  Sex: Female
  Weight: .99 kg

DRUGS (2)
  1. REBETOL [Suspect]
     Indication: HEPATITIS C
     Dosage: UNK
     Route: 064
     Dates: start: 20111209
  2. PEGINTRON [Suspect]
     Indication: HEPATITIS C
     Dosage: UNK
     Route: 064
     Dates: start: 20111209

REACTIONS (4)
  - Premature baby [Recovering/Resolving]
  - Low birth weight baby [Unknown]
  - Exposure via father [Unknown]
  - Pneumonia [Recovering/Resolving]
